FAERS Safety Report 7274793-2 (Version None)
Quarter: 2011Q1

REPORT INFORMATION
  Report Type: 
  Country: None (occurrence: None)
  Receive Date: 20110128
  Receipt Date: 20110112
  Transmission Date: 20110831
  Serious: Yes (Hospitalization)
  Sender: FDA-Public Use
  Company Number: DSA_44795_2011

PATIENT
  Age: 36 Year
  Sex: Female

DRUGS (4)
  1. THERAPY UNSPECIFIED [Concomitant]
  2. CORTICOSTEROIDS [Concomitant]
  3. ENALAPRIL MALEATE AND HYDROCHLOROTHIAZIDE [Suspect]
     Indication: HYPERTENSION
     Dosage: DF ORAL
     Route: 048
     Dates: end: 20091029
  4. LYSODREN [Concomitant]

REACTIONS (4)
  - ADDISON'S DISEASE [None]
  - SEPTIC SHOCK [None]
  - LEFT VENTRICULAR DYSFUNCTION [None]
  - HYPOTENSION [None]
